FAERS Safety Report 9790230 (Version 1)
Quarter: 2013Q4

REPORT INFORMATION
  Report Type: Report from Study
  Country: US (occurrence: US)
  Receive Date: 20131231
  Receipt Date: 20131231
  Transmission Date: 20140711
  Serious: Yes (Death, Hospitalization)
  Sender: FDA-Public Use
  Company Number: US-SA-2013SA135573

PATIENT
  Sex: Female

DRUGS (4)
  1. DOCETAXEL [Suspect]
     Indication: BREAST CANCER
     Dosage: DOSE ADMINISTERED ON DAY 1 OF EVERY 21 DAY CYCLE INTRAVENOUSLY OVER 1 HOUR
     Route: 042
  2. VINORELBINE [Suspect]
     Indication: BREAST CANCER
     Dosage: DOSE ADMINISTERED FROM DAY 8-15 OF EVERY 21 DAY CYCLE INTRAVENOUSLY OVER 6-10 MINUTES
     Route: 042
  3. FILGRASTIM [Suspect]
     Indication: BREAST CANCER
     Dosage: DOSE ADMINISTERED DAILY FROM DAY 2-21 IN EVERY 21 DAY CYCLE
     Route: 058
  4. DEXAMETHASONE [Concomitant]
     Indication: PREMEDICATION

REACTIONS (2)
  - Cardio-respiratory arrest [Fatal]
  - Pneumonia [Fatal]
